FAERS Safety Report 17062317 (Version 1)
Quarter: 2019Q4

REPORT INFORMATION
  Report Type: Spontaneous
  Country: US (occurrence: US)
  Receive Date: 20191122
  Receipt Date: 20191122
  Transmission Date: 20200122
  Serious: Yes (Death)
  Sender: FDA-Public Use
  Company Number: US-MALLINCKRODT-T201907634

PATIENT
  Age: 16 Month
  Sex: Female
  Weight: 13 kg

DRUGS (1)
  1. TOFRANIL [Suspect]
     Active Substance: IMIPRAMINE HYDROCHLORIDE
     Indication: PRODUCT USED FOR UNKNOWN INDICATION
     Dosage: 25 MILLIGRAM, UNK
     Route: 048

REACTIONS (2)
  - Accidental exposure to product by child [Unknown]
  - Respiratory arrest [Fatal]
